FAERS Safety Report 19224898 (Version 1)
Quarter: 2021Q2

REPORT INFORMATION
  Report Type: Spontaneous
  Country: NL (occurrence: NL)
  Receive Date: 20210506
  Receipt Date: 20210506
  Transmission Date: 20210717
  Serious: Yes (Other)
  Sender: FDA-Public Use
  Company Number: NL-ACCORD-224195

PATIENT
  Sex: Male
  Weight: 83 kg

DRUGS (11)
  1. METFORMIN [Concomitant]
     Active Substance: METFORMIN HYDROCHLORIDE
     Dosage: 850 MG (MILLIGRAM)
  2. GABAPENTIN. [Concomitant]
     Active Substance: GABAPENTIN
     Dosage: 300 MG (MILLIGRAM)
  3. PANTOPRAZOLE [Concomitant]
     Active Substance: PANTOPRAZOLE
     Dosage: 40 MG (MILLIGRAM)
  4. COLECALCIFEROL [Concomitant]
     Active Substance: CHOLECALCIFEROL
     Dosage: 25,000IU , 0.5ML AQUEOUS FNA MR
  5. QUETIAPINE. [Suspect]
     Active Substance: QUETIAPINE
     Indication: HALLUCINATION
     Dosage: 2DD1?TABLET FO STRENGTH:25MG
     Dates: start: 20210331, end: 20210402
  6. MOVICOLON [Concomitant]
     Active Substance: POLYETHYLENE GLYCOL 3350\POTASSIUM CHLORIDE\SODIUM BICARBONATE\SODIUM CHLORIDE
     Dosage: SALTS POWDER FOR ORAL SOLUTION (MOVIC / MOLAX / LAXT / GEN) /
  7. PARACETAMOL [Concomitant]
     Active Substance: ACETAMINOPHEN
     Dosage: 500 MG (MILLIGRAM)
  8. LORAZEPAM. [Concomitant]
     Active Substance: LORAZEPAM
     Dosage: 1 MG (MILLIGRAM)
  9. ENALAPRIL [Concomitant]
     Active Substance: ENALAPRIL
     Dosage: 10 MG (MILLIGRAM)
  10. ACETYLSALICYLIC ACID [Concomitant]
     Active Substance: ASPIRIN
     Dosage: 80 MG (MILLIGRAM)
  11. FOLIC ACID. [Concomitant]
     Active Substance: FOLIC ACID
     Dosage: 0,5 MG (MILLIGRAM)

REACTIONS (2)
  - Coma [Recovered/Resolved]
  - Off label use [Unknown]
